FAERS Safety Report 10563485 (Version 4)
Quarter: 2015Q1

REPORT INFORMATION
  Report Type: Report from Study
  Country: NL (occurrence: NL)
  Receive Date: 20141104
  Receipt Date: 20150211
  Transmission Date: 20150720
  Serious: Yes (Other)
  Sender: FDA-Public Use
  Company Number: NL-BAYER-2014-121763

PATIENT
  Age: 46 Year
  Sex: Female

DRUGS (5)
  1. BETAFERON [Suspect]
     Active Substance: INTERFERON BETA-1B
     Indication: RELAPSING-REMITTING MULTIPLE SCLEROSIS
     Dosage: UNK UNK, QOD
     Dates: start: 20140812, end: 2014
  2. OXAZEPAM. [Concomitant]
     Active Substance: OXAZEPAM
  3. BETAFERON [Suspect]
     Active Substance: INTERFERON BETA-1B
     Indication: RELAPSING-REMITTING MULTIPLE SCLEROSIS
     Dosage: 0.5 ML/125 MCG
     Route: 058
     Dates: start: 2014
  4. SYMMETREL [Concomitant]
     Active Substance: AMANTADINE HYDROCHLORIDE
  5. FLUOXETINE [Concomitant]
     Active Substance: FLUOXETINE\FLUOXETINE HYDROCHLORIDE

REACTIONS (15)
  - Nausea [None]
  - Multiple sclerosis relapse [Not Recovered/Not Resolved]
  - Dyspepsia [None]
  - Hyperhidrosis [None]
  - Fear [Not Recovered/Not Resolved]
  - Depressed mood [Not Recovered/Not Resolved]
  - Acne [Not Recovered/Not Resolved]
  - Gait disturbance [Not Recovered/Not Resolved]
  - Headache [None]
  - Fatigue [Not Recovered/Not Resolved]
  - Injection site erythema [Recovering/Resolving]
  - Menstruation delayed [Not Recovered/Not Resolved]
  - Malaise [Recovering/Resolving]
  - Wrong technique in drug usage process [None]
  - Injection site discolouration [Recovering/Resolving]

NARRATIVE: CASE EVENT DATE: 20140818
